FAERS Safety Report 8384262-4 (Version None)
Quarter: 2012Q2

REPORT INFORMATION
  Report Type: 
  Country: None (occurrence: None)
  Receive Date: 20120524
  Receipt Date: 20120516
  Transmission Date: 20120825
  Serious: Yes (Hospitalization)
  Sender: FDA-Public Use
  Company Number: US-VERTEX PHARMACEUTICALS INC.-AE-2012-003590

PATIENT
  Sex: Male

DRUGS (4)
  1. INCIVEK [Suspect]
     Indication: HEPATITIS C
     Route: 048
     Dates: start: 20120128, end: 20120421
  2. PEGASYS [Concomitant]
     Indication: HEPATITIS C
     Route: 058
     Dates: start: 20120128, end: 20120401
  3. PEGASYS [Concomitant]
     Dates: start: 20120401
  4. RIBAVIRIN [Concomitant]
     Indication: HEPATITIS C
     Route: 048
     Dates: start: 20120128

REACTIONS (2)
  - OPEN WOUND [None]
  - STAPHYLOCOCCAL INFECTION [None]
